FAERS Safety Report 5484701-2 (Version None)
Quarter: 2007Q4

REPORT INFORMATION
  Report Type: 
  Country: None (occurrence: None)
  Receive Date: 20071012
  Receipt Date: 20071003
  Transmission Date: 20080405
  Serious: Yes (Other)
  Sender: FDA-Public Use
  Company Number: FR-PFIZER INC-2007065634

PATIENT
  Sex: Male
  Weight: 93 kg

DRUGS (5)
  1. TAHOR [Suspect]
     Indication: TYPE 2 DIABETES MELLITUS
     Route: 048
     Dates: start: 20070530, end: 20070620
  2. STAGID [Concomitant]
     Indication: TYPE 2 DIABETES MELLITUS
     Route: 048
  3. GLYBURIDE [Concomitant]
     Indication: TYPE 2 DIABETES MELLITUS
     Dosage: DAILY DOSE:1.25MG-FREQ:DAILY
     Route: 048
  4. LISINOPRIL AND HYDROCHLOROTHIAZIDE [Concomitant]
     Indication: HYPERTENSION
     Dosage: TEXT:20MG/12.5MG DAILY
     Route: 048
  5. CARDENSIEL [Concomitant]
     Indication: CARDIAC FAILURE
     Dosage: DAILY DOSE:1.25MG-FREQ:DAILY
     Route: 048

REACTIONS (4)
  - CHEILITIS [None]
  - CONJUNCTIVITIS [None]
  - EYELID PAIN [None]
  - LIP SWELLING [None]
